FAERS Safety Report 16649422 (Version 3)
Quarter: 2020Q1

REPORT INFORMATION
  Report Type: Report from Study
  Country: US (occurrence: US)
  Receive Date: 20190730
  Receipt Date: 20200103
  Transmission Date: 20200409
  Serious: Yes (Hospitalization, Other)
  Sender: FDA-Public Use
  Company Number: US-JNJFOC-20190736510

PATIENT
  Sex: Male

DRUGS (5)
  1. IMBRUVICA [Suspect]
     Active Substance: IBRUTINIB
     Dosage: 1 LOTNO AND EXP DATES: L0700682A1 - 31-MAY-2021 / 03656409A1 -28-FEB-2022
     Route: 048
     Dates: start: 2019
  2. IMBRUVICA [Suspect]
     Active Substance: IBRUTINIB
     Dosage: 1 LOTNO AND EXP DATES: L0700682A1 - 31-MAY-2021 / 03656409A1 -28-FEB-2022
     Route: 048
     Dates: start: 2019
  3. XARELTO [Suspect]
     Active Substance: RIVAROXABAN
     Indication: CEREBROVASCULAR ACCIDENT
     Route: 048
     Dates: start: 2019, end: 2019
  4. IMBRUVICA [Suspect]
     Active Substance: IBRUTINIB
     Indication: CHRONIC LYMPHOCYTIC LEUKAEMIA
     Dosage: 1 LOTNO AND EXP DATES: L0700682A1 - 31-MAY-2021 / 03656409A1 -28-FEB-2022
     Route: 048
     Dates: start: 201602
  5. IMBRUVICA [Suspect]
     Active Substance: IBRUTINIB
     Dosage: 140 MG, QD?1 LOTNO AND EXP DATES: L0700682A1 - 31-MAY-2021 / 03656409A1 -28-FEB-2022
     Route: 048
     Dates: start: 20180621

REACTIONS (6)
  - Carotid artery occlusion [Unknown]
  - Disease progression [Unknown]
  - Haematuria [Unknown]
  - Blood glucose increased [Unknown]
  - Cerebrovascular accident [Unknown]
  - Renal failure [Unknown]

NARRATIVE: CASE EVENT DATE: 2019
